FAERS Safety Report 6888652-8 (Version None)
Quarter: 2010Q3

REPORT INFORMATION
  Report Type: 
  Country: None (occurrence: None)
  Receive Date: 20100730
  Receipt Date: 20071128
  Transmission Date: 20110219
  Serious: No
  Sender: FDA-Public Use
  Company Number: US-PFIZER INC-2007084336

PATIENT
  Sex: Male
  Weight: 219 kg

DRUGS (3)
  1. LIPITOR [Suspect]
     Indication: CORONARY ARTERY DISEASE
     Dates: start: 19970101
  2. ZOCOR [Concomitant]
  3. TRICOR [Concomitant]

REACTIONS (3)
  - BLOOD GLUCOSE INCREASED [None]
  - GLYCOSYLATED HAEMOGLOBIN INCREASED [None]
  - UNEVALUABLE EVENT [None]
